FAERS Safety Report 23745959 (Version 2)
Quarter: 2024Q2

REPORT INFORMATION
  Report Type: Other
  Country: US (occurrence: None)
  Receive Date: 20240416
  Receipt Date: 20240419
  Transmission Date: 20240716
  Serious: No
  Sender: FDA-Public Use
  Company Number: US-ROCHE-3540533

PATIENT
  Age: 26 Year
  Sex: Female
  Weight: 63.56 kg

DRUGS (6)
  1. ACTEMRA [Suspect]
     Active Substance: TOCILIZUMAB
     Indication: Rheumatoid arthritis
     Dosage: DOSAGE: 162MG/0.9ML ;ONGOING: YES
     Route: 058
     Dates: start: 20240313
  2. ACTEMRA [Suspect]
     Active Substance: TOCILIZUMAB
     Indication: SARS-CoV-2 test positive
  3. ACTEMRA [Suspect]
     Active Substance: TOCILIZUMAB
     Indication: Rheumatoid arthritis
     Dosage: DATE OF TREATMENT 02/FEB/2024
     Route: 042
     Dates: start: 2013, end: 202402
  4. ACTEMRA [Suspect]
     Active Substance: TOCILIZUMAB
     Indication: SARS-CoV-2 test positive
  5. LEFLUNOMIDE [Concomitant]
     Active Substance: LEFLUNOMIDE
     Indication: Arthritis
  6. PANTOPRAZOLE [Concomitant]
     Active Substance: PANTOPRAZOLE
     Indication: Gastrooesophageal reflux disease

REACTIONS (5)
  - Exposure via skin contact [Recovered/Resolved]
  - COVID-19 [Recovered/Resolved]
  - Product quality issue [Unknown]
  - Underdose [Unknown]
  - Wrong technique in device usage process [Unknown]

NARRATIVE: CASE EVENT DATE: 20230101
